FAERS Safety Report 7810605-3 (Version None)
Quarter: 2011Q4

REPORT INFORMATION
  Report Type: 
  Country: None (occurrence: None)
  Receive Date: 20111013
  Receipt Date: 20110930
  Transmission Date: 20120403
  Serious: No
  Sender: FDA-Public Use
  Company Number: US-BIOGENIDEC-2011BI037819

PATIENT
  Age: 51 Year
  Sex: Female

DRUGS (2)
  1. DRUG (NOS) [Concomitant]
     Indication: BALANCE DISORDER
  2. TYSABRI [Suspect]
     Indication: MULTIPLE SCLEROSIS
     Route: 042
     Dates: start: 20081125

REACTIONS (2)
  - ABDOMINAL PAIN UPPER [None]
  - MUSCULOSKELETAL DISORDER [None]
